FAERS Safety Report 24753233 (Version 1)
Quarter: 2024Q4

REPORT INFORMATION
  Report Type: Other
  Country: CA (occurrence: CA)
  Receive Date: 20241219
  Receipt Date: 20241219
  Transmission Date: 20250115
  Serious: Yes (Other)
  Sender: APOTEX
  Company Number: CA-APOTEX-2024AP019720

PATIENT
  Age: 35 Year
  Sex: Male

DRUGS (14)
  1. ARIPIPRAZOLE [Interacting]
     Active Substance: ARIPIPRAZOLE
     Indication: Psychotic disorder
     Dosage: 10 MILLIGRAM
     Route: 048
  2. CLONAZEPAM [Interacting]
     Active Substance: CLONAZEPAM
     Indication: Poor quality sleep
     Dosage: UNK
     Route: 065
  3. LITHIUM [Interacting]
     Active Substance: LITHIUM
     Indication: Product used for unknown indication
     Dosage: 900 MILLIGRAM
     Route: 048
  4. OXAZEPAM [Interacting]
     Active Substance: OXAZEPAM
     Indication: Poor quality sleep
     Dosage: UNK
     Route: 065
  5. QUETIAPINE [Interacting]
     Active Substance: QUETIAPINE
     Indication: Bipolar I disorder
     Dosage: UNK
     Route: 065
  6. TEMAZEPAM [Interacting]
     Active Substance: TEMAZEPAM
     Indication: Poor quality sleep
     Dosage: UNK
     Route: 065
  7. ZOPICLONE [Interacting]
     Active Substance: ZOPICLONE
     Indication: Poor quality sleep
     Dosage: UNK
     Route: 065
  8. ARIPIPRAZOLE [Interacting]
     Active Substance: ARIPIPRAZOLE
     Indication: Psychotic disorder
     Dosage: 400 MILLIGRAM
     Route: 030
  9. BENZTROPINE [Interacting]
     Active Substance: BENZTROPINE
     Indication: Dystonia
     Dosage: UNK
     Route: 065
  10. LIBRIUM [Interacting]
     Active Substance: CHLORDIAZEPOXIDE HYDROCHLORIDE
     Indication: Poor quality sleep
     Dosage: UNK
     Route: 065
  11. LEVOMEPROMAZINE [Interacting]
     Active Substance: LEVOMEPROMAZINE
     Indication: Poor quality sleep
     Dosage: UNK
     Route: 065
  12. LORAZEPAM [Concomitant]
     Active Substance: LORAZEPAM
     Indication: Product used for unknown indication
     Dosage: UNK
     Route: 065
  13. SERTRALINE [Concomitant]
     Active Substance: SERTRALINE HYDROCHLORIDE
     Indication: Product used for unknown indication
     Dosage: UNK
     Route: 065
  14. VORTIOXETINE [Concomitant]
     Active Substance: VORTIOXETINE
     Indication: Product used for unknown indication
     Dosage: UNK
     Route: 065

REACTIONS (5)
  - Dystonia [Unknown]
  - Restlessness [Unknown]
  - Dystonic tremor [Unknown]
  - Drug interaction [Unknown]
  - Off label use [Unknown]
